FAERS Safety Report 25979205 (Version 3)
Quarter: 2025Q4

REPORT INFORMATION
  Report Type: Spontaneous
  Country: EU (occurrence: EU)
  Receive Date: 20251030
  Receipt Date: 20251111
  Transmission Date: 20260118
  Serious: Yes (Congenital Anomaly, Other)
  Sender: UCB
  Company Number: EU-EMB-M202406901-1

PATIENT
  Weight: 2.25 kg

DRUGS (4)
  1. CIMZIA [Suspect]
     Active Substance: CERTOLIZUMAB PEGOL
     Indication: Ankylosing spondylitis
     Dosage: APPLIED ONCE EVERY 2-3 WEEKS
  2. ASPIRIN [Suspect]
     Active Substance: ASPIRIN
     Indication: Prophylaxis
     Dosage: 100 MILLIGRAM, ONCE DAILY (QD)
  3. PROGESTERONE [Concomitant]
     Active Substance: PROGESTERONE
     Indication: Assisted fertilisation
     Dosage: POSSIBLY TAKEN LONGER, DOSAGE UNKNOWNIN THE BEGINNING TAKEN ORALLY THEN APPLIED VAGINALLY
  4. IBUPROFEN [Concomitant]
     Active Substance: IBUPROFEN
     Indication: Ankylosing spondylitis
     Dosage: IMPRECISE AND CONFLICTING DATES, UNKNOWN UNTIL WHEN

REACTIONS (4)
  - Microcephaly [Recovered/Resolved]
  - Small for dates baby [Recovered/Resolved]
  - Low birth weight baby [Unknown]
  - Foetal exposure during pregnancy [Unknown]
